FAERS Safety Report 20589372 (Version 1)
Quarter: 2022Q1

REPORT INFORMATION
  Report Type: Spontaneous
  Country: US (occurrence: None)
  Receive Date: 20220312
  Receipt Date: 20220312
  Transmission Date: 20220423
  Serious: Yes (Hospitalization)
  Sender: FDA-Public Use
  Company Number: None

PATIENT
  Sex: Female
  Weight: 117.48 kg

DRUGS (3)
  1. LENALIDOMIDE [Suspect]
     Active Substance: LENALIDOMIDE
     Dates: end: 20220307
  2. DARATUMUMAB [Suspect]
     Active Substance: DARATUMUMAB
     Dates: end: 20220302
  3. DEXAMETHASONE [Suspect]
     Active Substance: DEXAMETHASONE
     Dates: end: 20220302

REACTIONS (18)
  - Oropharyngeal pain [None]
  - Eye swelling [None]
  - Lymphadenopathy [None]
  - Lacrimation increased [None]
  - Flank pain [None]
  - Decreased appetite [None]
  - Diarrhoea [None]
  - Therapy cessation [None]
  - Hyponatraemia [None]
  - Candida infection [None]
  - Paraesthesia [None]
  - Leukocytosis [None]
  - Anaemia [None]
  - Total lung capacity decreased [None]
  - Hypoventilation [None]
  - Atelectasis [None]
  - Pleural effusion [None]
  - Pulmonary oedema [None]

NARRATIVE: CASE EVENT DATE: 20220305
